FAERS Safety Report 7323725-7 (Version None)
Quarter: 2011Q1

REPORT INFORMATION
  Report Type: 
  Country: None (occurrence: None)
  Receive Date: 20110216
  Receipt Date: 20110202
  Transmission Date: 20110831
  Serious: Yes (Hospitalization)
  Sender: FDA-Public Use
  Company Number: 2011MA000995

PATIENT
  Age: 41 Year
  Sex: Male

DRUGS (1)
  1. SERTRALINE HYDROCHLORIDE [Suspect]

REACTIONS (16)
  - BLOOD CREATINE PHOSPHOKINASE INCREASED [None]
  - PARAESTHESIA [None]
  - BLOOD PRESSURE INCREASED [None]
  - CONFUSIONAL STATE [None]
  - VIITH NERVE PARALYSIS [None]
  - BLOOD TRIGLYCERIDES INCREASED [None]
  - DIZZINESS [None]
  - SINUS BRADYCARDIA [None]
  - DYSARTHRIA [None]
  - ASPARTATE AMINOTRANSFERASE INCREASED [None]
  - DRUG SCREEN POSITIVE [None]
  - BLOOD CHOLESTEROL INCREASED [None]
  - BLOOD CREATININE INCREASED [None]
  - HYPOAESTHESIA [None]
  - ALANINE AMINOTRANSFERASE INCREASED [None]
  - MYXOEDEMA COMA [None]
